FAERS Safety Report 14548220 (Version 1)
Quarter: 2018Q1

REPORT INFORMATION
  Report Type: Spontaneous
  Country: US (occurrence: US)
  Receive Date: 20180219
  Receipt Date: 20180219
  Transmission Date: 20180509
  Serious: No
  Sender: FDA-Public Use
  Company Number: US-ROCHE-1963476

PATIENT
  Age: 18 Year
  Sex: Male
  Weight: 81.72 kg

DRUGS (1)
  1. NUTROPIN AQ [Suspect]
     Active Substance: SOMATROPIN
     Indication: HYPOPITUITARISM
     Route: 058
     Dates: start: 20170614

REACTIONS (1)
  - Headache [Unknown]

NARRATIVE: CASE EVENT DATE: 20170711
